FAERS Safety Report 8185522-2 (Version None)
Quarter: 2012Q1

REPORT INFORMATION
  Report Type: 
  Country: None (occurrence: None)
  Receive Date: 20120301
  Receipt Date: 20120215
  Transmission Date: 20120608
  Serious: Yes (Hospitalization, Other)
  Sender: FDA-Public Use
  Company Number: CIP11001748

PATIENT
  Sex: Female
  Weight: 113.6 kg

DRUGS (29)
  1. FOSAMAX [Suspect]
     Dosage: 70 MG, UNK, ORAL
     Route: 048
     Dates: start: 20070809, end: 20080101
  2. LYRICA [Concomitant]
  3. TORSEMIDE [Concomitant]
  4. PROZAC [Concomitant]
  5. ACTONEL [Suspect]
     Indication: OSTEOPOROSIS
     Dosage: 35 MG ONCE WEEKLY ORAL
     Route: 048
     Dates: start: 20041109
  6. HYZAAR [Concomitant]
  7. HYDROCODONE BITARTRATE [Concomitant]
  8. NEXIUM (ESOMEPRAZOLE MAGESIUM) [Concomitant]
  9. CYANOCOBALAMIN [Concomitant]
  10. METHOTREXATE [Concomitant]
  11. CALCIUM [Concomitant]
  12. FOLIC ACID [Concomitant]
  13. POTASSIUM CHLORIDE [Concomitant]
  14. HYDROCODONE W/ PARACETAMOL (HYDROCODONE, PARACETAMOL) [Concomitant]
  15. IRON PREPARATIONS [Concomitant]
  16. AVELOX [Concomitant]
  17. PRAVACHOL [Concomitant]
  18. LEXAPRO [Concomitant]
  19. VITAMIN D [Concomitant]
  20. AMOXICILLIN [Concomitant]
  21. CYMBALTA [Concomitant]
  22. CEFUROXIME AXETIL [Concomitant]
  23. LIPITOR [Concomitant]
  24. DOXYCYCLINE HYCLATE (DOXYCYCLINE HYCLATE) [Concomitant]
  25. PREVACID [Concomitant]
  26. ENBREL [Concomitant]
  27. PREDNISONE TAB [Concomitant]
  28. NYSTATIN [Concomitant]
  29. MULTIVITAMIN (ASCORBIC ACID,CALCIUM PANTOTHENATE, ERGOCALCIFEROL, NICO [Concomitant]

REACTIONS (16)
  - FEMUR FRACTURE [None]
  - RED BLOOD CELL SEDIMENTATION RATE INCREASED [None]
  - TIBIA FRACTURE [None]
  - DYSSTASIA [None]
  - OEDEMA PERIPHERAL [None]
  - STRESS FRACTURE [None]
  - COMMINUTED FRACTURE [None]
  - DEVICE BREAKAGE [None]
  - JOINT CREPITATION [None]
  - PAIN IN EXTREMITY [None]
  - FIBULA FRACTURE [None]
  - KNEE DEFORMITY [None]
  - FALL [None]
  - FRACTURE NONUNION [None]
  - ABSCESS SOFT TISSUE [None]
  - BONE GRAFT [None]
